FAERS Safety Report 23035721 (Version 1)
Quarter: 2023Q4

REPORT INFORMATION
  Report Type: Spontaneous
  Country: US (occurrence: US)
  Receive Date: 20231006
  Receipt Date: 20231006
  Transmission Date: 20240110
  Serious: No
  Sender: FDA-Public Use
  Company Number: US-APOTEX-2023AP008108

PATIENT
  Sex: Male

DRUGS (4)
  1. ACYCLOVIR [Suspect]
     Active Substance: ACYCLOVIR
     Indication: Herpes simplex
     Dosage: UNK
     Route: 048
  2. ACYCLOVIR [Suspect]
     Active Substance: ACYCLOVIR
     Indication: Prophylaxis
  3. GANCICLOVIR [Concomitant]
     Active Substance: GANCICLOVIR
     Indication: Ophthalmic herpes simplex
     Dosage: UNK
     Route: 065
  4. TRIFLURIDINE [Concomitant]
     Active Substance: TRIFLURIDINE
     Indication: Ophthalmic herpes simplex
     Dosage: UNK
     Route: 065

REACTIONS (1)
  - Drug resistance [Unknown]
